FAERS Safety Report 13335403 (Version 1)
Quarter: 2017Q1

REPORT INFORMATION
  Report Type: Spontaneous
  Country: IE (occurrence: IE)
  Receive Date: 20170315
  Receipt Date: 20170315
  Transmission Date: 20170428
  Serious: Yes (Other)
  Sender: FDA-Public Use
  Company Number: IE-ROCHE-1905423

PATIENT
  Sex: Male

DRUGS (1)
  1. ESBRIET [Suspect]
     Active Substance: PIRFENIDONE
     Indication: IDIOPATHIC PULMONARY FIBROSIS
     Route: 065
     Dates: start: 2017

REACTIONS (13)
  - Dizziness [Unknown]
  - Fatigue [Unknown]
  - Hypogeusia [Unknown]
  - Tongue dry [Unknown]
  - Plicated tongue [Unknown]
  - Feeling of body temperature change [Unknown]
  - Influenza like illness [Unknown]
  - Swollen tongue [Unknown]
  - Nausea [Unknown]
  - Tongue haemorrhage [Unknown]
  - Mouth ulceration [Unknown]
  - Balance disorder [Unknown]
  - Haemorrhage subcutaneous [Unknown]
